FAERS Safety Report 22525840 (Version 1)
Quarter: 2023Q2

REPORT INFORMATION
  Report Type: Spontaneous
  Country: None (occurrence: A1)
  Receive Date: 20230606
  Receipt Date: 20230606
  Transmission Date: 20230721
  Serious: Yes (Hospitalization)
  Sender: FDA-Public Use
  Company Number: A1-Nephron Pharmaceuticals Corporation-2142376

PATIENT
  Age: 14 Month
  Sex: Male
  Weight: 9 kg

DRUGS (1)
  1. SODIUM CHLORIDE [Suspect]
     Active Substance: SODIUM CHLORIDE
     Indication: Hypotension
     Route: 041

REACTIONS (1)
  - Essential hypertension [Recovering/Resolving]
